FAERS Safety Report 10626498 (Version 1)
Quarter: 2014Q4

REPORT INFORMATION
  Report Type: Spontaneous
  Country: FR (occurrence: FR)
  Receive Date: 20141204
  Receipt Date: 20141204
  Transmission Date: 20150529
  Serious: Yes (Hospitalization, Other)
  Sender: FDA-Public Use
  Company Number: FR-PFIZER INC-2014331304

PATIENT
  Age: 82 Year
  Sex: Female

DRUGS (6)
  1. AMLODIPINE [Concomitant]
     Active Substance: AMLODIPINE BESYLATE
     Dosage: UNK
  2. ATENOLOL. [Concomitant]
     Active Substance: ATENOLOL
     Dosage: UNK
  3. COUMADINE [Interacting]
     Active Substance: WARFARIN SODIUM
     Dosage: 1 TABLET ONE DAY AND 1 TABLET AND A HALF THE OTHER DAY
     Route: 065
     Dates: end: 20141102
  4. INEXIUM [Concomitant]
     Active Substance: ESOMEPRAZOLE
     Dosage: UNK
  5. CORDARONE [Suspect]
     Active Substance: AMIODARONE HYDROCHLORIDE
     Dosage: 1 DF, DAILY
     Route: 065
  6. DEROXAT [Interacting]
     Active Substance: PAROXETINE HYDROCHLORIDE
     Dosage: 1 DF, DAILY
     Route: 065

REACTIONS (5)
  - Peritoneal haemorrhage [Recovering/Resolving]
  - Fall [Unknown]
  - Peritonitis [Unknown]
  - Liver carcinoma ruptured [Unknown]
  - Drug interaction [Unknown]

NARRATIVE: CASE EVENT DATE: 20141102
